FAERS Safety Report 5045079-1 (Version None)
Quarter: 2006Q2

REPORT INFORMATION
  Report Type: 
  Country: None (occurrence: None)
  Receive Date: 20060628
  Receipt Date: 20060615
  Transmission Date: 20061013
  Serious: Yes (Death, Hospitalization)
  Sender: FDA-Public Use
  Company Number: 200610259

PATIENT
  Age: 81 Year
  Sex: Male
  Weight: 86 kg

DRUGS (4)
  1. CARIMUNE [Suspect]
     Indication: IDIOPATHIC THROMBOCYTOPENIC PURPURA
     Dosage: 34 G DAILY IV
     Route: 042
     Dates: start: 20060612, end: 20060613
  2. LOPRESSOR [Concomitant]
  3. PREDNISONE [Concomitant]
  4. PROTONIX /01263201/ [Concomitant]

REACTIONS (13)
  - AGITATION [None]
  - ATRIAL FIBRILLATION [None]
  - CHEST X-RAY ABNORMAL [None]
  - CONFUSIONAL STATE [None]
  - DYSPNOEA [None]
  - HYPOGLYCAEMIA [None]
  - HYPOTENSION [None]
  - METABOLIC ACIDOSIS [None]
  - OXYGEN SATURATION DECREASED [None]
  - RESTLESSNESS [None]
  - SEPSIS [None]
  - TACHYCARDIA [None]
  - THROMBOTIC THROMBOCYTOPENIC PURPURA [None]
